FAERS Safety Report 6251541-6 (Version None)
Quarter: 2009Q2

REPORT INFORMATION
  Report Type: 
  Country: None (occurrence: None)
  Receive Date: 20090626
  Receipt Date: 20090626
  Transmission Date: 20091009
  Serious: No
  Sender: FDA-Public Use
  Company Number: None

PATIENT
  Age: 55 Year
  Sex: Male
  Weight: 83.9154 kg

DRUGS (1)
  1. ZICAM NORMAL ZICAM NASAL SCHWAB [Suspect]
     Indication: NASOPHARYNGITIS
     Dosage: 1 1 NASAL; ONCE
     Route: 045
     Dates: start: 20050608, end: 20050608

REACTIONS (3)
  - ANOSMIA [None]
  - HYPOGEUSIA [None]
  - NASAL DISCOMFORT [None]
